FAERS Safety Report 9892278 (Version 2)
Quarter: 2014Q2

REPORT INFORMATION
  Report Type: Spontaneous
  Country: US (occurrence: US)
  Receive Date: 20140212
  Receipt Date: 20140415
  Transmission Date: 20141212
  Serious: Yes (Other)
  Sender: FDA-Public Use
  Company Number: US-PFIZER INC-2014037326

PATIENT
  Age: 48 Year
  Sex: Female
  Weight: 99.77 kg

DRUGS (2)
  1. DICLOFENAC EPOLAMINE [Suspect]
     Dosage: UNK
  2. HYDROXYCHLOROQUINE [Concomitant]
     Indication: SYSTEMIC LUPUS ERYTHEMATOSUS
     Dosage: 200 MG, 2X/DAY

REACTIONS (3)
  - Fall [Unknown]
  - Meniscus injury [Unknown]
  - Ligament rupture [Unknown]
